FAERS Safety Report 17594418 (Version 1)
Quarter: 2020Q1

REPORT INFORMATION
  Report Type: Spontaneous
  Country: CO (occurrence: CO)
  Receive Date: 20200327
  Receipt Date: 20200327
  Transmission Date: 20200409
  Serious: Yes (Other)
  Sender: FDA-Public Use
  Company Number: CO-VALIDUS PHARMACEUTICALS LLC-CO-2020VAL000238

PATIENT

DRUGS (1)
  1. CALCITRIOL. [Suspect]
     Active Substance: CALCITRIOL
     Indication: PRODUCT USED FOR UNKNOWN INDICATION
     Dosage: UNK
     Route: 065

REACTIONS (7)
  - Pain [Unknown]
  - Ligament rupture [Unknown]
  - Visual impairment [Unknown]
  - Tibia fracture [Not Recovered/Not Resolved]
  - Fibula fracture [Not Recovered/Not Resolved]
  - Herpes virus infection [Unknown]
  - Ill-defined disorder [Unknown]
